FAERS Safety Report 24443577 (Version 2)
Quarter: 2024Q4

REPORT INFORMATION
  Report Type: Report from Study
  Country: US (occurrence: US)
  Receive Date: 20241016
  Receipt Date: 20241017
  Transmission Date: 20250114
  Serious: No
  Sender: ROCHE
  Company Number: US-ROCHE-1917866

PATIENT
  Age: 58 Year
  Sex: Male
  Weight: 93.0 kg

DRUGS (6)
  1. RITUXAN [Suspect]
     Active Substance: RITUXIMAB
     Indication: Multiple sclerosis
     Dosage: DATE OF TREATMENT: 06/MAR/2017, 22/MAR/2017
     Route: 042
  2. RITUXAN [Suspect]
     Active Substance: RITUXIMAB
     Route: 042
  3. COPAXONE [Concomitant]
     Active Substance: GLATIRAMER ACETATE
  4. TYSABRI [Concomitant]
     Active Substance: NATALIZUMAB
  5. METHOTREXATE [Concomitant]
     Active Substance: METHOTREXATE
  6. TECFIDERA [Concomitant]
     Active Substance: DIMETHYL FUMARATE
     Dates: start: 201502

REACTIONS (2)
  - No adverse event [Unknown]
  - Drug ineffective [Unknown]
